FAERS Safety Report 7838191-2 (Version None)
Quarter: 2011Q4

REPORT INFORMATION
  Report Type: 
  Country: None (occurrence: None)
  Receive Date: 20111024
  Receipt Date: 20111014
  Transmission Date: 20120403
  Serious: Yes (Hospitalization)
  Sender: FDA-Public Use
  Company Number: PHHY2011DE91523

PATIENT
  Age: 24 Year
  Sex: Male

DRUGS (1)
  1. CLOZAPINE [Suspect]
     Indication: SCHIZOPHRENIA
     Route: 048

REACTIONS (7)
  - INTENTIONAL SELF-INJURY [None]
  - FOREIGN BODY [None]
  - OVERDOSE [None]
  - INFECTION [None]
  - SUICIDE ATTEMPT [None]
  - ABDOMINAL PAIN [None]
  - PYREXIA [None]
